FAERS Safety Report 11628881 (Version 1)
Quarter: 2015Q4

REPORT INFORMATION
  Report Type: Spontaneous
  Country: CH (occurrence: CL)
  Receive Date: 20151014
  Receipt Date: 20151014
  Transmission Date: 20160304
  Serious: Yes (Hospitalization)
  Sender: FDA-Public Use
  Company Number: CH-LPDUSPRD-20150784

PATIENT
  Age: 20 Year
  Sex: Female

DRUGS (4)
  1. FERINJECT [Suspect]
     Active Substance: FERRIC CARBOXYMALTOSE
     Dosage: 1000 MG IN 1000 ML SERUM SOLN
     Route: 065
  2. BETAMETHASONE. [Concomitant]
     Active Substance: BETAMETHASONE
     Route: 065
  3. GUTRON [Concomitant]
     Active Substance: MIDODRINE
     Dosage: 0.5 DOSAGE FORM, 1 IN 12 HR
     Route: 065
  4. CHLORPHENAMINE [Concomitant]
     Active Substance: CHLORPHENIRAMINE MALEATE
     Route: 065

REACTIONS (5)
  - Myalgia [Unknown]
  - Muscle spasms [Unknown]
  - Product preparation error [Unknown]
  - Arthralgia [Unknown]
  - Muscular weakness [Unknown]
